FAERS Safety Report 9900037 (Version 1)
Quarter: 2014Q1

REPORT INFORMATION
  Report Type: Spontaneous
  Country: US (occurrence: US)
  Receive Date: 20140214
  Receipt Date: 20140214
  Transmission Date: 20141002
  Serious: No
  Sender: FDA-Public Use
  Company Number: US-VIVUS-2014V1000026

PATIENT
  Age: 38 Year
  Sex: Female
  Weight: 86.26 kg

DRUGS (5)
  1. QSYMIA 3.75MG/23MG [Suspect]
     Indication: WEIGHT DECREASED
     Route: 048
     Dates: start: 201309, end: 201309
  2. QSYMIA 7.5MG/46MG [Suspect]
     Indication: WEIGHT DECREASED
     Route: 048
     Dates: start: 20130923, end: 201401
  3. SYNTHROID [Concomitant]
     Indication: HYPOTHYROIDISM
     Route: 048
     Dates: start: 2002
  4. CYTOMEL [Concomitant]
     Indication: HYPOTHYROIDISM
     Route: 048
     Dates: start: 2006
  5. CONCERTA [Concomitant]
     Indication: NARCOLEPSY
     Route: 048
     Dates: start: 2004

REACTIONS (1)
  - Drug ineffective [Not Recovered/Not Resolved]
